FAERS Safety Report 14891756 (Version 7)
Quarter: 2019Q4

REPORT INFORMATION
  Report Type: Report from Study
  Country: US (occurrence: US)
  Receive Date: 20180514
  Receipt Date: 20191224
  Transmission Date: 20200122
  Serious: Yes (Hospitalization, Other)
  Sender: FDA-Public Use
  Company Number: US-JAZZ-2018-US-006552

PATIENT
  Age: 61 Year
  Sex: Female

DRUGS (20)
  1. RITALIN [Concomitant]
     Active Substance: METHYLPHENIDATE HYDROCHLORIDE
  2. CLONAZEPAM. [Concomitant]
     Active Substance: CLONAZEPAM
  3. XYREM [Suspect]
     Active Substance: SODIUM OXYBATE
     Dosage: 3 G, BID
     Route: 048
     Dates: start: 201804
  4. DICLOFENAC SODIUM. [Concomitant]
     Active Substance: DICLOFENAC SODIUM
  5. LOSARTAN POTASSIUM. [Concomitant]
     Active Substance: LOSARTAN POTASSIUM
  6. METOPROLOL TARTRATE. [Concomitant]
     Active Substance: METOPROLOL TARTRATE
  7. SUMATRIPTAN SUCCINATE. [Concomitant]
     Active Substance: SUMATRIPTAN SUCCINATE
  8. XYREM [Suspect]
     Active Substance: SODIUM OXYBATE
     Dosage: 3 G, BID
     Route: 048
     Dates: start: 20180507
  9. VITAMIN D3 [Concomitant]
     Active Substance: CHOLECALCIFEROL
  10. PRAMIPEXOLE. [Concomitant]
     Active Substance: PRAMIPEXOLE
  11. XYREM [Suspect]
     Active Substance: SODIUM OXYBATE
     Indication: CATAPLEXY
     Dosage: 3 G, BID
     Route: 048
     Dates: start: 201804, end: 201804
  12. TRAMADOL HCL [Concomitant]
     Active Substance: TRAMADOL HYDROCHLORIDE
  13. XYREM [Suspect]
     Active Substance: SODIUM OXYBATE
     Indication: NARCOLEPSY
     Dosage: 2.25 G, BID
     Route: 048
     Dates: start: 201804, end: 201804
  14. XYREM [Suspect]
     Active Substance: SODIUM OXYBATE
     Dosage: 3.5 G, BID
     Route: 048
     Dates: start: 201804, end: 201804
  15. XYREM [Suspect]
     Active Substance: SODIUM OXYBATE
     Dosage: 2.25 G, BID
     Route: 048
     Dates: start: 20180503, end: 20180506
  16. HYDRALAZINE [Concomitant]
     Active Substance: HYDRALAZINE HYDROCHLORIDE
  17. CYMBALTA [Concomitant]
     Active Substance: DULOXETINE HYDROCHLORIDE
  18. FUROSEMIDE. [Concomitant]
     Active Substance: FUROSEMIDE
  19. METHOCARBAMOL. [Concomitant]
     Active Substance: METHOCARBAMOL
  20. SIMVASTATIN. [Concomitant]
     Active Substance: SIMVASTATIN

REACTIONS (27)
  - Condition aggravated [Not Recovered/Not Resolved]
  - Flatulence [Unknown]
  - Migraine [Unknown]
  - Pain [Not Recovered/Not Resolved]
  - Musculoskeletal discomfort [Not Recovered/Not Resolved]
  - Stress [Unknown]
  - Chronic sinusitis [Not Recovered/Not Resolved]
  - Dizziness [Unknown]
  - Confusional state [Not Recovered/Not Resolved]
  - Hypotension [Unknown]
  - Headache [Unknown]
  - Depression [Unknown]
  - Heart rate increased [Unknown]
  - Influenza [Recovered/Resolved]
  - Productive cough [Not Recovered/Not Resolved]
  - Stomatitis [Not Recovered/Not Resolved]
  - Anxiety [Not Recovered/Not Resolved]
  - Pre-existing condition improved [Unknown]
  - Irritable bowel syndrome [Not Recovered/Not Resolved]
  - Condition aggravated [Unknown]
  - Memory impairment [Not Recovered/Not Resolved]
  - Therapeutic response unexpected [Unknown]
  - Muscle spasms [Unknown]
  - Hypertension [Recovering/Resolving]
  - Nasopharyngitis [Unknown]
  - Fatigue [Not Recovered/Not Resolved]
  - Diarrhoea [Unknown]

NARRATIVE: CASE EVENT DATE: 201804
